FAERS Safety Report 19145720 (Version 1)
Quarter: 2021Q2

REPORT INFORMATION
  Report Type: Spontaneous
  Country: US (occurrence: US)
  Receive Date: 20210416
  Receipt Date: 20210416
  Transmission Date: 20210717
  Serious: Yes (Other)
  Sender: FDA-Public Use
  Company Number: US-JNJFOC-20210419545

PATIENT
  Age: 34 Year
  Sex: Female

DRUGS (3)
  1. STELARA [Suspect]
     Active Substance: USTEKINUMAB
     Indication: PRODUCT USED FOR UNKNOWN INDICATION
     Route: 058
  2. HUMIRA [Suspect]
     Active Substance: ADALIMUMAB
     Indication: CROHN^S DISEASE
     Route: 058
     Dates: end: 202102
  3. REMICADE [Suspect]
     Active Substance: INFLIXIMAB
     Indication: PRODUCT USED FOR UNKNOWN INDICATION
     Route: 042

REACTIONS (7)
  - Abscess intestinal [Unknown]
  - Medical device removal [Unknown]
  - Intestinal fistula [Unknown]
  - Application site pain [Not Recovered/Not Resolved]
  - Drug specific antibody present [Unknown]
  - Central venous catheter removal [Unknown]
  - Intestinal ulcer [Unknown]

NARRATIVE: CASE EVENT DATE: 2021
